FAERS Safety Report 6228289-7 (Version None)
Quarter: 2009Q2

REPORT INFORMATION
  Report Type: 
  Country: None (occurrence: None)
  Receive Date: 20090612
  Receipt Date: 20090609
  Transmission Date: 20091009
  Serious: No
  Sender: FDA-Public Use
  Company Number: PHEH2009US05906

PATIENT
  Sex: Male

DRUGS (3)
  1. TASIGNA [Suspect]
     Indication: CHRONIC MYELOID LEUKAEMIA
     Dosage: 400 MG, Q12H
     Route: 065
     Dates: start: 20080801
  2. METFORMIN HYDROCHLORIDE [Suspect]
     Dosage: 500 MG, QD
     Route: 048
  3. METFORMIN HYDROCHLORIDE [Suspect]
     Dosage: 1000 MG, QD

REACTIONS (2)
  - DIARRHOEA [None]
  - DRUG ADMINISTRATION ERROR [None]
